FAERS Safety Report 13666229 (Version 1)
Quarter: 2017Q2

REPORT INFORMATION
  Report Type: Spontaneous
  Country: US (occurrence: US)
  Receive Date: 20170619
  Receipt Date: 20170619
  Transmission Date: 20170830
  Serious: Yes (Other)
  Sender: FDA-Public Use
  Company Number: US-ROCHE-619194

PATIENT
  Sex: Male
  Weight: 57.2 kg

DRUGS (5)
  1. ELOXATIN [Suspect]
     Active Substance: OXALIPLATIN
     Indication: GASTRIC CANCER
     Dosage: RECEIVED THREE CYCLES, TEMPORARILY DISCONTINUED
     Route: 042
  2. EPIRUBICIN [Concomitant]
     Active Substance: EPIRUBICIN
     Indication: GASTRIC CANCER
     Dosage: RECEIVED THREE CYCLES
     Route: 042
     Dates: start: 20090109, end: 20090214
  3. ACLARUBICIN [Concomitant]
     Active Substance: ACLARUBICIN
     Indication: GASTRIC CANCER
     Route: 065
  4. OXALIPLATIN. [Concomitant]
     Active Substance: OXALIPLATIN
     Indication: GASTRIC CANCER
     Route: 042
     Dates: start: 20090109, end: 20090214
  5. XELODA [Suspect]
     Active Substance: CAPECITABINE
     Indication: GASTRIC CANCER
     Dosage: RECEIVED THREE CYCLES
     Route: 065

REACTIONS (3)
  - Alanine aminotransferase increased [Recovered/Resolved]
  - Aspartate aminotransferase increased [Recovered/Resolved]
  - Blood bilirubin increased [Recovered/Resolved]
